FAERS Safety Report 8192213-0 (Version None)
Quarter: 2012Q1

REPORT INFORMATION
  Report Type: 
  Country: None (occurrence: None)
  Receive Date: 20120307
  Receipt Date: 20120305
  Transmission Date: 20120608
  Serious: Yes (Other)
  Sender: FDA-Public Use
  Company Number: US-PFIZER INC-2012026946

PATIENT
  Sex: Female
  Weight: 79.365 kg

DRUGS (5)
  1. FEMARA [Concomitant]
     Indication: BREAST CANCER
     Dosage: 2.5 MG, UNK
     Dates: start: 20020101
  2. FEMARA [Concomitant]
     Indication: LYMPHOMA
  3. CHANTIX [Suspect]
     Indication: SMOKING CESSATION THERAPY
     Dosage: UNK
  4. CRESTOR [Concomitant]
     Indication: BLOOD CHOLESTEROL INCREASED
     Dosage: UNK
  5. CHANTIX [Suspect]
     Dosage: 0.5 MG, 1X/DAY
     Route: 048
     Dates: start: 20110101, end: 20110101

REACTIONS (4)
  - SLEEP DISORDER [None]
  - PAIN [None]
  - TENDON RUPTURE [None]
  - ERUCTATION [None]
